FAERS Safety Report 16141115 (Version 1)
Quarter: 2019Q2

REPORT INFORMATION
  Report Type: Spontaneous
  Country: US (occurrence: US)
  Receive Date: 20190401
  Receipt Date: 20190401
  Transmission Date: 20190711
  Serious: No
  Sender: FDA-Public Use
  Company Number: US-PFIZER INC-2019127977

PATIENT
  Age: 56 Year
  Sex: Female
  Weight: 102.6 kg

DRUGS (1)
  1. LYRICA [Suspect]
     Active Substance: PREGABALIN
     Indication: PAIN
     Dosage: 2 DF, 2X/DAY (TWO CAPSULES BY MOUTH TWICE DAILY)
     Route: 048
     Dates: start: 201811

REACTIONS (2)
  - Intentional dose omission [Unknown]
  - Dizziness [Unknown]
